FAERS Safety Report 10229092 (Version 1)
Quarter: 2014Q2

REPORT INFORMATION
  Report Type: Spontaneous
  Country: GB (occurrence: GB)
  Receive Date: 20140610
  Receipt Date: 20140610
  Transmission Date: 20141212
  Serious: Yes (Other)
  Sender: FDA-Public Use
  Company Number: PHHY2014GB068115

PATIENT
  Age: 40 Year
  Sex: Male

DRUGS (8)
  1. CITALOPRAM [Suspect]
     Indication: DEPRESSION
     Dosage: 40 MG, QD
     Route: 048
  2. ACICLOVIR [Concomitant]
  3. LANSOPRAZOLE [Concomitant]
  4. LORAZEPAM [Concomitant]
  5. MEROPENEM [Concomitant]
  6. METOCLOPRAMIDE [Concomitant]
  7. ONDANSETRON [Concomitant]
  8. SULCONAZOLE [Concomitant]

REACTIONS (2)
  - Germ cell cancer [Not Recovered/Not Resolved]
  - Alpha 1 foetoprotein increased [Not Recovered/Not Resolved]
